FAERS Safety Report 7312272-4 (Version None)
Quarter: 2011Q1

REPORT INFORMATION
  Report Type: 
  Country: None (occurrence: None)
  Receive Date: 20110224
  Receipt Date: 20110219
  Transmission Date: 20110831
  Serious: Yes (Other)
  Sender: FDA-Public Use
  Company Number: A0915145A

PATIENT
  Age: 34 Year
  Sex: Female

DRUGS (3)
  1. TRASTUZUMAB [Suspect]
  2. CAPECITABINE [Suspect]
  3. TYKERB [Suspect]
     Dosage: 250MG UNKNOWN

REACTIONS (4)
  - DISEASE PROGRESSION [None]
  - RASH [None]
  - METASTASES TO PERITONEUM [None]
  - DIARRHOEA [None]
